FAERS Safety Report 14447257 (Version 2)
Quarter: 2018Q1

REPORT INFORMATION
  Report Type: Spontaneous
  Country: US (occurrence: US)
  Receive Date: 20180126
  Receipt Date: 20180131
  Transmission Date: 20180509
  Serious: Yes (Other)
  Sender: FDA-Public Use
  Company Number: US-ASTRAZENECA-2018SE11170

PATIENT
  Sex: Female
  Weight: 108.9 kg

DRUGS (2)
  1. IBRANCE [Suspect]
     Active Substance: PALBOCICLIB
     Indication: BREAST CANCER METASTATIC
     Dosage: D 1-21 Q 28 DAYS
     Route: 048
     Dates: start: 20171204
  2. FASLODEX [Suspect]
     Active Substance: FULVESTRANT
     Route: 030

REACTIONS (4)
  - Injection site bruising [Unknown]
  - Cerebrovascular accident [Unknown]
  - Injection site pain [Unknown]
  - Injection site nodule [Unknown]
